FAERS Safety Report 20432646 (Version 2)
Quarter: 2022Q1

REPORT INFORMATION
  Report Type: Spontaneous
  Country: US (occurrence: US)
  Receive Date: 20220204
  Receipt Date: 20220224
  Transmission Date: 20220423
  Serious: Yes (Death)
  Sender: FDA-Public Use
  Company Number: US-Vifor (International) Inc.-VIT-2022-00701

PATIENT
  Sex: Male
  Weight: 83.5 kg

DRUGS (22)
  1. VELTASSA [Suspect]
     Active Substance: PATIROMER
     Indication: Product used for unknown indication
     Dosage: PACKETS
  2. TYLENOL [Concomitant]
     Active Substance: ACETAMINOPHEN
     Route: 048
  3. LIQUID CALCIUM [CALCIUM] [Concomitant]
  4. ASPIRIN [Concomitant]
     Active Substance: ASPIRIN
  5. LIPITOR [Concomitant]
     Active Substance: ATORVASTATIN CALCIUM
  6. CEFTIN [Concomitant]
     Active Substance: CEFUROXIME AXETIL
     Route: 048
  7. TRIGLIDE [Concomitant]
     Active Substance: FENOFIBRATE
  8. FOLVITE [Concomitant]
     Active Substance: FOLIC ACID
  9. LASIX [Concomitant]
     Active Substance: FUROSEMIDE
     Route: 048
  10. HYDRODIURIL [Concomitant]
     Active Substance: HYDROCHLOROTHIAZIDE
  11. PLAQUENIL [Concomitant]
     Active Substance: HYDROXYCHLOROQUINE SULFATE
  12. ATROVENT [Concomitant]
     Active Substance: IPRATROPIUM BROMIDE
     Route: 045
  13. XALATAN [Concomitant]
     Active Substance: LATANOPROST
     Route: 047
  14. LEFLUNOMIDE [Concomitant]
     Active Substance: LEFLUNOMIDE
  15. METHOTREXATE [Concomitant]
     Active Substance: METHOTREXATE
  16. TOPROL XL [Concomitant]
     Active Substance: METOPROLOL SUCCINATE
  17. VITAMINS [Concomitant]
     Active Substance: VITAMINS
  18. PRILOSEC [Concomitant]
     Active Substance: OMEPRAZOLE MAGNESIUM
  19. DELTASONE [Concomitant]
     Active Substance: PREDNISONE
  20. LOKELMA [Concomitant]
     Active Substance: SODIUM ZIRCONIUM CYCLOSILICATE
     Dosage: 1 PACKET DISSOLVED IN WATER
  21. FLOMAX [Concomitant]
     Active Substance: TAMSULOSIN HYDROCHLORIDE
  22. VICINE [Concomitant]
     Route: 047

REACTIONS (2)
  - Cardio-respiratory arrest [Fatal]
  - Lacunar infarction [Fatal]

NARRATIVE: CASE EVENT DATE: 20220101
